FAERS Safety Report 8681608 (Version 6)
Quarter: 2012Q4

REPORT INFORMATION
  Report Type: 
  Country: US (occurrence: US)
  Receive Date: 20120725
  Receipt Date: 20121015
  Transmission Date: 20130627
  Serious: Yes (Hospitalization, Other)
  Sender: FDA-Public Use
  Company Number: US-009507513-1207USA004238

PATIENT

DRUGS (21)
  1. FOSAMAX [Suspect]
     Indication: OSTEOPENIA
     Dosage: 70 mg, qw
     Route: 048
     Dates: start: 2003, end: 20080408
  2. FOSAMAX [Suspect]
     Indication: BONE DENSITY DECREASED
  3. FOSAMAX [Suspect]
     Indication: OSTEOPOROSIS
     Dosage: 70 mg, qw
     Route: 048
     Dates: start: 20081125, end: 20100727
  4. FOSAMAX [Suspect]
     Indication: BONE DENSITY DECREASED
  5. ALENDRONATE SODIUM [Suspect]
     Indication: OSTEOPOROSIS
     Dosage: 70 mg, UNK
     Route: 048
     Dates: start: 20080407, end: 20100727
  6. ALENDRONATE SODIUM [Suspect]
     Indication: BONE DENSITY DECREASED
  7. CALCIUM (UNSPECIFIED) [Concomitant]
     Dosage: 600-1200
     Dates: start: 2005
  8. VITAMINS (UNSPECIFIED) [Concomitant]
     Dosage: UNK
     Dates: start: 2005, end: 2011
  9. SYNTHROID [Concomitant]
     Indication: HYPOTHYROIDISM
     Dosage: 100 UNK, UNK
     Dates: start: 1995
  10. NEURONTIN [Concomitant]
     Indication: NEURALGIA
  11. GABAPENTIN [Concomitant]
     Indication: NEURALGIA
  12. LIDODERM [Concomitant]
     Indication: NEURALGIA
  13. CYMBALTA [Concomitant]
     Indication: NEURALGIA
  14. LYRICA [Concomitant]
  15. ELAVIL (MADE BY MERCK, MARKETED BY ZENECA) [Concomitant]
     Indication: NEURALGIA
     Dosage: UNK
     Dates: start: 20080703
  16. VOLTAREN EMULGEL [Concomitant]
     Indication: NEURALGIA
     Dosage: UNK
     Route: 061
     Dates: start: 20080703
  17. BENICAR [Concomitant]
     Indication: MALIGNANT HYPERTENSION
     Dosage: 40/25
  18. LABETALOL HYDROCHLORIDE [Concomitant]
     Indication: MALIGNANT HYPERTENSION
     Dosage: 300 mg, UNK
  19. NIFEDIPINE [Concomitant]
     Indication: MALIGNANT HYPERTENSION
     Dosage: 90 mg, bid
  20. HYDROCHLOROTHIAZIDE (+) OLMESARTAN MEDOXOMIL [Concomitant]
     Indication: MALIGNANT HYPERTENSION
     Dosage: 40/25
  21. HYDROCHLOROTHIAZIDE [Concomitant]
     Indication: MALIGNANT HYPERTENSION

REACTIONS (48)
  - Intramedullary rod insertion [Unknown]
  - Basal cell carcinoma [Unknown]
  - Muscle contracture [Unknown]
  - Tenolysis [Unknown]
  - Closed fracture manipulation [Unknown]
  - Rectal prolapse [Unknown]
  - Rectal prolapse repair [Unknown]
  - Urinary retention [Recovered/Resolved]
  - Procedural nausea [Unknown]
  - Procedural pain [Unknown]
  - Procedural vomiting [Unknown]
  - Femur fracture [Unknown]
  - Femur fracture [Recovered/Resolved]
  - Low turnover osteopathy [Unknown]
  - Gingival graft [Unknown]
  - Endodontic procedure [Unknown]
  - Hand fracture [Unknown]
  - Blood pressure fluctuation [Unknown]
  - Syncope [Unknown]
  - Excoriation [Unknown]
  - Chest pain [Unknown]
  - Carotid artery stenosis [Unknown]
  - Ventricular extrasystoles [Unknown]
  - Supraventricular extrasystoles [Unknown]
  - Cardiac septal hypertrophy [Unknown]
  - Mitral valve incompetence [Unknown]
  - Aortic valve incompetence [Unknown]
  - Tricuspid valve incompetence [Unknown]
  - Pulmonary mass [Not Recovered/Not Resolved]
  - Hyperlipidaemia [Unknown]
  - Hypotension [Unknown]
  - Deep vein thrombosis [Unknown]
  - Cholelithiasis [Unknown]
  - Drug intolerance [Unknown]
  - Dry eye [Unknown]
  - Fall [Unknown]
  - Intervertebral disc degeneration [Unknown]
  - Bursitis [Unknown]
  - Vena cava filter insertion [Unknown]
  - Impaired healing [Unknown]
  - Arrhythmia [Unknown]
  - Essential hypertension [Unknown]
  - Insomnia [Unknown]
  - Body height decreased [Unknown]
  - Arthralgia [Unknown]
  - Constipation [Unknown]
  - Dizziness [Unknown]
  - Drug ineffective [Unknown]
